FAERS Safety Report 7500941-2 (Version None)
Quarter: 2011Q2

REPORT INFORMATION
  Report Type: 
  Country: None (occurrence: None)
  Receive Date: 20110524
  Receipt Date: 20110518
  Transmission Date: 20111010
  Serious: No
  Sender: FDA-Public Use
  Company Number: US-PFIZER INC-2010003680

PATIENT
  Sex: Female
  Weight: 65.76 kg

DRUGS (4)
  1. ZOLOFT [Suspect]
     Indication: DEPRESSION
     Dosage: 50 MG, UNK
     Dates: start: 20091101
  2. ZOLOFT [Suspect]
     Dosage: UNK
     Dates: start: 20110101
  3. ZOLOFT [Suspect]
     Indication: ANXIETY
     Dosage: 100 MG, 1X/DAY
     Dates: start: 20091101, end: 20100119
  4. KLONOPIN [Concomitant]
     Indication: ANXIETY
     Dosage: UNK
     Route: 048

REACTIONS (8)
  - CHROMATURIA [None]
  - ABDOMINAL PAIN UPPER [None]
  - INSOMNIA [None]
  - PARAESTHESIA [None]
  - VITAMIN D DECREASED [None]
  - DRUG INEFFECTIVE [None]
  - DIARRHOEA [None]
  - FLATULENCE [None]
